FAERS Safety Report 7511690-9 (Version None)
Quarter: 2011Q2

REPORT INFORMATION
  Report Type: 
  Country: None (occurrence: None)
  Receive Date: 20110531
  Receipt Date: 20110525
  Transmission Date: 20111010
  Serious: Yes (Death, Hospitalization, Other)
  Sender: FDA-Public Use
  Company Number: US-ASTELLAS-2011US002090

PATIENT
  Sex: Male

DRUGS (1)
  1. PROGRAF [Suspect]
     Indication: LIVER TRANSPLANT
     Dosage: 1 MG, BID
     Route: 048
     Dates: end: 20110123

REACTIONS (4)
  - RENAL FAILURE CHRONIC [None]
  - CHRONIC HEPATIC FAILURE [None]
  - HEPATITIS C [None]
  - TREATMENT NONCOMPLIANCE [None]
